FAERS Safety Report 13500684 (Version 1)
Quarter: 2017Q2

REPORT INFORMATION
  Report Type: Spontaneous
  Country: US (occurrence: US)
  Receive Date: 20170501
  Receipt Date: 20170501
  Transmission Date: 20170830
  Serious: No
  Sender: FDA-Public Use
  Company Number: US-009507513-1704USA001040

PATIENT
  Age: 24 Year
  Sex: Female
  Weight: 56.24 kg

DRUGS (1)
  1. NUVARING [Suspect]
     Active Substance: ETHINYL ESTRADIOL\ETONOGESTREL
     Indication: CONTRACEPTION
     Dosage: UNK, 4 WEEKS CONTINUOUSLY
     Route: 067

REACTIONS (7)
  - Incorrect drug administration duration [Unknown]
  - Intentional medical device removal by patient [Unknown]
  - Incorrect drug administration duration [Unknown]
  - Product use issue [Unknown]
  - Vaginal haemorrhage [Unknown]
  - Inappropriate schedule of drug administration [Unknown]
  - Withdrawal bleed [Unknown]

NARRATIVE: CASE EVENT DATE: 20170316
